FAERS Safety Report 5666864-9 (Version None)
Quarter: 2008Q1

REPORT INFORMATION
  Report Type: 
  Country: None (occurrence: None)
  Receive Date: 20080315
  Receipt Date: 20080219
  Transmission Date: 20080703
  Serious: No
  Sender: FDA-Public Use
  Company Number: US-ABBOTT-08P-163-0432436-00

PATIENT
  Sex: Female
  Weight: 68.1 kg

DRUGS (5)
  1. HUMIRA [Suspect]
     Indication: CROHN'S DISEASE
     Route: 058
     Dates: start: 20071112, end: 20071112
  2. HUMIRA [Suspect]
     Route: 058
     Dates: start: 20071126, end: 20071126
  3. HUMIRA [Suspect]
     Route: 058
     Dates: start: 20071213, end: 20071224
  4. INTERCORT [Concomitant]
     Indication: CROHN'S DISEASE
     Route: 048
  5. MESALAMINE [Concomitant]
     Indication: CROHN'S DISEASE
     Route: 048

REACTIONS (7)
  - ARTHRALGIA [None]
  - BONE PAIN [None]
  - BONE SWELLING [None]
  - FEELING COLD [None]
  - JOINT SWELLING [None]
  - MUSCLE SWELLING [None]
  - MYALGIA [None]
